FAERS Safety Report 5834933-6 (Version None)
Quarter: 2008Q3

REPORT INFORMATION
  Report Type: 
  Country: None (occurrence: None)
  Receive Date: 20080804
  Receipt Date: 20080717
  Transmission Date: 20090109
  Serious: Yes (Other)
  Sender: FDA-Public Use
  Company Number: 8035000

PATIENT
  Age: 63 Year
  Sex: Male

DRUGS (4)
  1. PREDNISOLONE [Suspect]
     Indication: CHONDROCALCINOSIS PYROPHOSPHATE
     Dosage: 30 MG 1/D
  2. PREDNISOLONE [Suspect]
     Indication: CHONDROCALCINOSIS PYROPHOSPHATE
     Dosage: 1/D
  3. INDOMETHACIN [Suspect]
     Indication: CHONDROCALCINOSIS PYROPHOSPHATE
     Dosage: 150 MG/D
  4. ALLOPURINOL [Concomitant]

REACTIONS (5)
  - CRYSTAL ARTHROPATHY [None]
  - CUSHINGOID [None]
  - HYPERURICAEMIA [None]
  - SERONEGATIVE ARTHRITIS [None]
  - WEIGHT INCREASED [None]
